FAERS Safety Report 11543016 (Version 1)
Quarter: 2015Q3

REPORT INFORMATION
  Report Type: Spontaneous
  Country: US (occurrence: US)
  Receive Date: 20150903
  Receipt Date: 20150903
  Transmission Date: 20151125
  Serious: No
  Sender: FDA-Public Use
  Company Number: US-ELI_LILLY_AND_COMPANY-US201205006828

PATIENT
  Age: 7 Year
  Sex: Male

DRUGS (2)
  1. HUMALOG [Suspect]
     Active Substance: INSULIN LISPRO
     Indication: DIABETES MELLITUS
     Dosage: 50 U, QD
     Dates: start: 201005
  2. LANTUS [Concomitant]
     Active Substance: INSULIN GLARGINE
     Dosage: UNK

REACTIONS (3)
  - Drug ineffective [Recovered/Resolved]
  - Abdominal pain [Unknown]
  - Blood glucose increased [Recovered/Resolved]
